FAERS Safety Report 6744940-7 (Version None)
Quarter: 2010Q2

REPORT INFORMATION
  Report Type: 
  Country: None (occurrence: None)
  Receive Date: 20100527
  Receipt Date: 20100519
  Transmission Date: 20101027
  Serious: Yes (Hospitalization)
  Sender: FDA-Public Use
  Company Number: JP-AMGEN-US400164

PATIENT
  Sex: Male
  Weight: 63 kg

DRUGS (13)
  1. ENBREL [Suspect]
     Indication: RHEUMATOID ARTHRITIS
     Route: 058
     Dates: start: 20090623, end: 20090703
  2. ENBREL [Suspect]
     Route: 058
     Dates: start: 20090706, end: 20090928
  3. PREDONINE [Suspect]
     Route: 048
     Dates: start: 20030101
  4. AZULFIDINE [Concomitant]
     Route: 048
     Dates: start: 20060101
  5. ORCL [Concomitant]
     Route: 048
     Dates: start: 20070701
  6. CELECOXIB [Concomitant]
     Route: 048
     Dates: start: 20081006
  7. MUCOSOLVAN [Concomitant]
     Route: 048
     Dates: start: 20090706
  8. GASLON [Concomitant]
     Route: 048
     Dates: start: 20070811
  9. OLMESARTAN MEDOXOMIL [Concomitant]
     Route: 048
     Dates: start: 20081215
  10. GLAKAY [Concomitant]
     Route: 048
     Dates: start: 20071119
  11. ASPENON [Concomitant]
     Route: 048
     Dates: start: 20090624
  12. PARIET [Concomitant]
     Route: 048
     Dates: start: 20071015
  13. AMBROXOL HYDROCHLORIDE [Concomitant]
     Route: 048
     Dates: start: 20090706

REACTIONS (2)
  - BONE MARROW DISORDER [None]
  - SEPTIC ARTHRITIS STAPHYLOCOCCAL [None]
